FAERS Safety Report 18241452 (Version 1)
Quarter: 2020Q3

REPORT INFORMATION
  Report Type: Spontaneous
  Country: US (occurrence: US)
  Receive Date: 20200908
  Receipt Date: 20200908
  Transmission Date: 20201103
  Serious: Yes (Other)
  Sender: FDA-Public Use
  Company Number: US-EMCURE PHARMACEUTICALS LTD-2020-EPL-001206

PATIENT
  Age: 67 Year
  Sex: Male

DRUGS (2)
  1. DECITABINE. [Concomitant]
     Active Substance: DECITABINE
     Indication: MYELOID LEUKAEMIA
     Dosage: UNK
  2. ZONISAMIDE. [Suspect]
     Active Substance: ZONISAMIDE
     Indication: ESSENTIAL TREMOR
     Dosage: 100 MILLIGRAM PER DAY

REACTIONS (3)
  - Choroidal effusion [Recovered/Resolved]
  - Off label use [Unknown]
  - Angle closure glaucoma [Recovered/Resolved]
